FAERS Safety Report 8309743-0 (Version None)
Quarter: 2012Q2

REPORT INFORMATION
  Report Type: 
  Country: None (occurrence: None)
  Receive Date: 20120425
  Receipt Date: 20120410
  Transmission Date: 20120825
  Serious: No
  Sender: FDA-Public Use
  Company Number: PHHY2011KR115767

PATIENT
  Sex: Male
  Weight: 62 kg

DRUGS (4)
  1. STEROIDS NOS [Concomitant]
  2. EXJADE [Suspect]
     Indication: IRON OVERLOAD
     Route: 048
  3. EXJADE [Suspect]
     Indication: APLASTIC ANAEMIA
  4. BLOOD TRANSFUSION, AUXILIARY PRODUCTS [Concomitant]

REACTIONS (2)
  - BONE DISORDER [None]
  - GAIT DISTURBANCE [None]
